FAERS Safety Report 11121072 (Version 1)
Quarter: 2015Q2

REPORT INFORMATION
  Report Type: Spontaneous
  Country: US (occurrence: None)
  Receive Date: 20150515
  Receipt Date: 20150515
  Transmission Date: 20150821
  Serious: Yes (Hospitalization, Other)
  Sender: FDA-Public Use
  Company Number: US-ZYDUS-008064

PATIENT
  Age: 79 Year
  Sex: Female

DRUGS (1)
  1. DONEPEZIL (DONEPEZIL) [Suspect]
     Active Substance: DONEPEZIL

REACTIONS (5)
  - Sinus arrhythmia [None]
  - Respiratory failure [None]
  - Vomiting [None]
  - Bradycardia [None]
  - Accidental exposure to product [None]
